FAERS Safety Report 5570429-7 (Version None)
Quarter: 2007Q4

REPORT INFORMATION
  Report Type: 
  Country: None (occurrence: None)
  Receive Date: 20071221
  Receipt Date: 20071219
  Transmission Date: 20080405
  Serious: Yes (Hospitalization)
  Sender: FDA-Public Use
  Company Number: FR-WYE-H01814107

PATIENT
  Sex: Female

DRUGS (5)
  1. INIPOMP [Suspect]
     Indication: PROPHYLAXIS
     Dosage: ^DF^
     Route: 048
     Dates: start: 20070816, end: 20070826
  2. MYOLASTAN [Concomitant]
     Indication: ARTHRALGIA
     Dosage: 50 MG (FREQUENCY UNSPECIFIED)
     Route: 048
     Dates: start: 20070816, end: 20070826
  3. PROPOFAN [Suspect]
     Indication: ARTHRALGIA
     Dosage: 457 MG (FREQUENCY UNSPECIFIED)
     Route: 048
     Dates: start: 20070816, end: 20070822
  4. FELDENE [Suspect]
     Indication: ARTHRALGIA
     Dosage: 20 MG (FREQUENCY UNSPECIFIED)
     Route: 030
     Dates: start: 20070816, end: 20070822
  5. RAMIPRIL [Suspect]
     Indication: ESSENTIAL HYPERTENSION
     Dosage: ^DF^
     Route: 048
     Dates: start: 20070615, end: 20070914

REACTIONS (2)
  - HENOCH-SCHONLEIN PURPURA [None]
  - RECTAL HAEMORRHAGE [None]
